FAERS Safety Report 5821637-9 (Version None)
Quarter: 2008Q3

REPORT INFORMATION
  Report Type: 
  Country: None (occurrence: None)
  Receive Date: 20080714
  Receipt Date: 20070925
  Transmission Date: 20090109
  Serious: Yes (Hospitalization)
  Sender: FDA-Public Use
  Company Number: 521446

PATIENT
  Age: 66 Year
  Sex: Female

DRUGS (2)
  1. BONIVA [Suspect]
     Indication: OSTEOPOROSIS
     Dosage: 150 MG 1 PER MONTH ORAL
     Route: 048
  2. ACETAMINOPHEN [Concomitant]

REACTIONS (4)
  - BACK PAIN [None]
  - DYSPHAGIA [None]
  - PRURITUS [None]
  - URTICARIA [None]
